FAERS Safety Report 8582032-5 (Version None)
Quarter: 2012Q3

REPORT INFORMATION
  Report Type: 
  Country: None (occurrence: None)
  Receive Date: 20120809
  Receipt Date: 20120802
  Transmission Date: 20120928
  Serious: Yes (Other)
  Sender: FDA-Public Use
  Company Number: US-PFIZER INC-2012188630

PATIENT
  Sex: Male

DRUGS (1)
  1. ADVIL [Suspect]
     Dosage: UNK
     Route: 048

REACTIONS (7)
  - BURNING SENSATION [None]
  - EYE DISORDER [None]
  - HAEMOPTYSIS [None]
  - VOMITING [None]
  - FEELING ABNORMAL [None]
  - CONJUNCTIVAL HAEMORRHAGE [None]
  - CIRCUMSTANCE OR INFORMATION CAPABLE OF LEADING TO MEDICATION ERROR [None]
